FAERS Safety Report 14186573 (Version 2)
Quarter: 2018Q2

REPORT INFORMATION
  Report Type: Spontaneous
  Country: US (occurrence: US)
  Receive Date: 20171114
  Receipt Date: 20180620
  Transmission Date: 20180711
  Serious: Yes (Death, Hospitalization)
  Sender: FDA-Public Use
  Company Number: US-ASTRAZENECA-2017SF13211

PATIENT
  Age: 67 Year
  Sex: Female
  Weight: 72.6 kg

DRUGS (36)
  1. CARAFATE [Concomitant]
     Active Substance: SUCRALFATE
     Route: 065
  2. ZANTAC 300 [Concomitant]
  3. CARVEDILOL. [Concomitant]
     Active Substance: CARVEDILOL
     Route: 065
  4. LISINOPRIL. [Concomitant]
     Active Substance: LISINOPRIL
     Route: 065
  5. DILTIAZEM. [Concomitant]
     Active Substance: DILTIAZEM
     Route: 065
  6. LITHIUM CARBONATE. [Concomitant]
     Active Substance: LITHIUM CARBONATE
     Route: 065
  7. DETROL LA [Concomitant]
     Active Substance: TOLTERODINE TARTRATE
     Route: 065
  8. METFORMIN [Concomitant]
     Active Substance: METFORMIN HYDROCHLORIDE
     Route: 065
  9. AVELOX [Concomitant]
     Active Substance: MOXIFLOXACIN HYDROCHLORIDE
     Route: 065
  10. HYDRALAZINE [Concomitant]
     Active Substance: HYDRALAZINE HYDROCHLORIDE
     Route: 065
  11. ZOFRAN [Concomitant]
     Active Substance: ONDANSETRON HYDROCHLORIDE
     Route: 065
  12. PEPCID COMPLETE (OTC) [Concomitant]
  13. ZITHROMAX [Concomitant]
     Active Substance: AZITHROMYCIN DIHYDRATE
     Route: 065
  14. LOVASTATIN. [Concomitant]
     Active Substance: LOVASTATIN
     Route: 065
  15. CHANTIX [Concomitant]
     Active Substance: VARENICLINE TARTRATE
     Route: 065
  16. TAZTIA XT [Concomitant]
     Active Substance: DILTIAZEM HYDROCHLORIDE
     Route: 065
  17. ALBUTEROL. [Concomitant]
     Active Substance: ALBUTEROL
     Route: 065
  18. NEXIUM [Suspect]
     Active Substance: ESOMEPRAZOLE MAGNESIUM
     Indication: GASTROOESOPHAGEAL REFLUX DISEASE
     Route: 048
     Dates: start: 2010, end: 2014
  19. ALLEGRA [Concomitant]
     Active Substance: FEXOFENADINE HYDROCHLORIDE
     Route: 065
  20. NOVOLOG [Concomitant]
     Active Substance: INSULIN ASPART
     Route: 065
  21. RANITIDINE. [Concomitant]
     Active Substance: RANITIDINE
     Route: 065
  22. PREVACID [Suspect]
     Active Substance: LANSOPRAZOLE
     Route: 048
     Dates: start: 2010, end: 2014
  23. KLOR-CON 10 ER [Concomitant]
     Route: 065
  24. LANTUS [Concomitant]
     Active Substance: INSULIN GLARGINE
     Route: 065
  25. AMLODIPINE BESYLATE. [Concomitant]
     Active Substance: AMLODIPINE BESYLATE
     Route: 065
  26. SPIRONOLACTONE. [Concomitant]
     Active Substance: SPIRONOLACTONE
     Route: 065
  27. FERROUS SULFATE. [Concomitant]
     Active Substance: FERROUS SULFATE
     Route: 065
  28. PRILOSEC [Suspect]
     Active Substance: OMEPRAZOLE MAGNESIUM
     Route: 048
     Dates: start: 2010, end: 2014
  29. PREDNISOLONE ACETATE. [Concomitant]
     Active Substance: PREDNISOLONE ACETATE
     Route: 065
  30. ACTOS [Concomitant]
     Active Substance: PIOGLITAZONE HYDROCHLORIDE
     Route: 065
  31. RANITIDINE. [Concomitant]
     Active Substance: RANITIDINE
     Route: 065
  32. BUMETANIDE. [Concomitant]
     Active Substance: BUMETANIDE
     Route: 065
  33. PROAIR HFA AER [Concomitant]
     Route: 065
  34. MAGNESIUM OXIDE. [Concomitant]
     Active Substance: MAGNESIUM OXIDE
     Route: 065
  35. MEPERITAB [Concomitant]
     Active Substance: MEPERIDINE HYDROCHLORIDE
     Route: 065
  36. SERTRALINE [Concomitant]
     Active Substance: SERTRALINE HYDROCHLORIDE
     Route: 065

REACTIONS (4)
  - Renal failure [Fatal]
  - End stage renal disease [Fatal]
  - Nephrogenic anaemia [Unknown]
  - Acute kidney injury [Fatal]
